FAERS Safety Report 8393332-6 (Version None)
Quarter: 2012Q2

REPORT INFORMATION
  Report Type: 
  Country: None (occurrence: None)
  Receive Date: 20120529
  Receipt Date: 20120519
  Transmission Date: 20120825
  Serious: Yes (Other)
  Sender: FDA-Public Use
  Company Number: US-JNJFOC-20120512527

PATIENT
  Age: 68 Year
  Sex: Female

DRUGS (2)
  1. REMICADE [Suspect]
     Indication: PRODUCT USED FOR UNKNOWN INDICATION
     Route: 042
     Dates: start: 20060406
  2. REMICADE [Suspect]
     Route: 042
     Dates: start: 20040521

REACTIONS (1)
  - SQUAMOUS CELL CARCINOMA OF SKIN [None]
